FAERS Safety Report 17402309 (Version 4)
Quarter: 2020Q1

REPORT INFORMATION
  Report Type: Spontaneous
  Country: US (occurrence: US)
  Receive Date: 20200211
  Receipt Date: 20200302
  Transmission Date: 20200409
  Serious: No
  Sender: FDA-Public Use
  Company Number: US-SA-2020SA033139

PATIENT
  Age: 67 Year
  Sex: Female

DRUGS (1)
  1. PRALUENT [Suspect]
     Active Substance: ALIROCUMAB
     Dosage: 75 MG, QOW
     Dates: start: 201911

REACTIONS (4)
  - Erythema [Unknown]
  - Hypersensitivity [Unknown]
  - Furuncle [Unknown]
  - Pruritus [Unknown]

NARRATIVE: CASE EVENT DATE: 20200124
